FAERS Safety Report 9644555 (Version 1)
Quarter: 2013Q4

REPORT INFORMATION
  Report Type: Report from Study
  Country: US (occurrence: US)
  Receive Date: 20131025
  Receipt Date: 20131025
  Transmission Date: 20140711
  Serious: Yes (Other)
  Sender: FDA-Public Use
  Company Number: US-ROCHE-1292783

PATIENT
  Age: 59 Year
  Sex: Female
  Weight: 152.09 kg

DRUGS (9)
  1. PEGASYS [Suspect]
     Indication: HEPATITIS C
     Route: 065
     Dates: start: 20130909
  2. COPEGUS [Suspect]
     Indication: HEPATITIS C
     Route: 048
     Dates: start: 20130909
  3. COPEGUS [Suspect]
     Route: 048
  4. TELAPREVIR [Suspect]
     Indication: HEPATITIS C
     Route: 048
     Dates: start: 20130909
  5. LASIX [Concomitant]
     Route: 048
     Dates: start: 20121127
  6. GABAPENTIN [Concomitant]
     Route: 065
     Dates: start: 20121127
  7. ZOFRAN [Concomitant]
     Route: 048
     Dates: start: 20131001
  8. XIFAXAN [Concomitant]
     Route: 065
     Dates: start: 20121122
  9. SPIRONOLACTONE [Concomitant]
     Route: 048
     Dates: start: 20121122

REACTIONS (2)
  - Pancytopenia [Unknown]
  - Haemorrhage [Recovering/Resolving]
